FAERS Safety Report 9193336 (Version 2)
Quarter: 2014Q1

REPORT INFORMATION
  Report Type: Spontaneous
  Country: US (occurrence: US)
  Receive Date: 20130327
  Receipt Date: 20140214
  Transmission Date: 20141002
  Serious: Yes (Death, Other)
  Sender: FDA-Public Use
  Company Number: US-TEVA-394702USA

PATIENT
  Age: 35 Year
  Sex: Female
  Weight: 97 kg

DRUGS (4)
  1. FENTANYL [Suspect]
     Indication: PRODUCT USED FOR UNKNOWN INDICATION
  2. DIPHENHYDRAMINE [Suspect]
  3. ALPRAZOLAM [Suspect]
  4. CHLORPROMAZINE [Suspect]

REACTIONS (8)
  - Arteriosclerosis coronary artery [Not Recovered/Not Resolved]
  - Hepatomegaly [Not Recovered/Not Resolved]
  - Hepatic steatosis [Not Recovered/Not Resolved]
  - Drug abuse [Fatal]
  - Toxicity to various agents [Fatal]
  - Pulmonary congestion [Not Recovered/Not Resolved]
  - Pulmonary oedema [Not Recovered/Not Resolved]
  - Cardiomegaly [Not Recovered/Not Resolved]
